FAERS Safety Report 22815671 (Version 4)
Quarter: 2023Q4

REPORT INFORMATION
  Report Type: Report from Study
  Country: DE (occurrence: None)
  Receive Date: 20230811
  Receipt Date: 20231128
  Transmission Date: 20240110
  Serious: Yes (Hospitalization)
  Sender: FDA-Public Use
  Company Number: DE-ROCHE-3397453

PATIENT
  Age: 46 Year
  Sex: Male
  Weight: 90 kg

DRUGS (9)
  1. OCRELIZUMAB [Suspect]
     Active Substance: OCRELIZUMAB
     Indication: Secondary progressive multiple sclerosis
     Route: 042
     Dates: start: 20210707
  2. OMEPRAZOLE [Concomitant]
     Active Substance: OMEPRAZOLE
     Route: 048
     Dates: start: 202205
  3. SULTANOL [Concomitant]
     Active Substance: ALBUTEROL SULFATE
     Dosage: 1 PUFF
     Route: 055
     Dates: start: 2012
  4. LORATADINE [Concomitant]
     Active Substance: LORATADINE
     Route: 048
     Dates: start: 1997
  5. ESCHERICHIA COLI [Concomitant]
     Active Substance: ESCHERICHIA COLI
     Route: 048
     Dates: start: 2019
  6. BACLOFEN [Concomitant]
     Active Substance: BACLOFEN
     Route: 048
     Dates: start: 202205
  7. FOSTER [Concomitant]
     Active Substance: BECLOMETHASONE\FORMOTEROL
     Dosage: 2 PUFFS
     Route: 055
     Dates: start: 20230115
  8. ASPIRIN [Concomitant]
     Active Substance: ASPIRIN
     Route: 048
     Dates: start: 20230726, end: 20230726
  9. HEPARIN [Concomitant]
     Active Substance: HEPARIN SODIUM
     Dosage: DOSE: 5000 U
     Route: 058
     Dates: start: 20230726, end: 20230726

REACTIONS (1)
  - Atrial flutter [Recovered/Resolved]

NARRATIVE: CASE EVENT DATE: 20230726
